FAERS Safety Report 9139486 (Version 2)
Quarter: 2013Q1

REPORT INFORMATION
  Report Type: Spontaneous
  Country: US (occurrence: US)
  Receive Date: 20130305
  Receipt Date: 20130312
  Transmission Date: 20140127
  Serious: Yes (Other)
  Sender: FDA-Public Use
  Company Number: US-JNJFOC-20130215835

PATIENT
  Sex: Male

DRUGS (4)
  1. DARUNAVIR [Suspect]
     Indication: HIV INFECTION
     Route: 048
  2. COMPLERA [Suspect]
     Indication: HIV INFECTION
     Dosage: TAKEN IN HTE MORNINGS AT 9:00 AM
     Route: 065
     Dates: start: 20120726
  3. TRUVADA [Suspect]
     Indication: HIV INFECTION
     Route: 065
  4. RITONAVIR [Suspect]
     Indication: HIV INFECTION
     Route: 065

REACTIONS (2)
  - Genotype drug resistance test positive [Unknown]
  - Blood HIV RNA increased [Unknown]
